FAERS Safety Report 8279823-7 (Version None)
Quarter: 2012Q2

REPORT INFORMATION
  Report Type: 
  Country: None (occurrence: None)
  Receive Date: 20120412
  Receipt Date: 20110916
  Transmission Date: 20120825
  Serious: No
  Sender: FDA-Public Use
  Company Number: US-ASTRAZENECA-2011SE55936

PATIENT
  Age: 61 Year
  Sex: Female
  Weight: 103.9 kg

DRUGS (14)
  1. SEROQUEL [Suspect]
     Indication: BIPOLAR DISORDER
     Route: 048
  2. LEVOTHRYROXINE [Concomitant]
     Indication: HYPOTHYROIDISM
  3. VENLAXAXINE HCL [Concomitant]
     Indication: PSYCHOTIC DISORDER
  4. ASPIRIN [Concomitant]
     Indication: ANTIPLATELET THERAPY
  5. SEROQUEL [Suspect]
     Route: 048
     Dates: start: 20110404
  6. SIMVASTATIN [Concomitant]
     Indication: BLOOD CHOLESTEROL ABNORMAL
  7. CALTIDRIOL [Concomitant]
     Indication: VITAMIN SUPPLEMENTATION
  8. BISOTROLOL [Concomitant]
     Indication: HYPERTENSION
  9. TRIAMTERENE AND HYDROCHLOROTHIAZIDE [Concomitant]
     Indication: HYPERTENSION
  10. CALCIUM CARBONATE [Concomitant]
     Indication: MINERAL SUPPLEMENTATION
  11. NATURE MADE STRESS VITAMINS [Concomitant]
     Indication: SUPPLEMENTATION THERAPY
  12. VITAMIN D [Concomitant]
     Indication: VITAMIN SUPPLEMENTATION
  13. NEXIUM [Suspect]
     Indication: GASTROOESOPHAGEAL REFLUX DISEASE
     Route: 048
     Dates: start: 19990101
  14. POTASSIUM OTC [Concomitant]
     Indication: MINERAL SUPPLEMENTATION

REACTIONS (9)
  - HYPOACUSIS [None]
  - GASTRIC DISORDER [None]
  - MEMORY IMPAIRMENT [None]
  - BIPOLAR DISORDER [None]
  - MANIA [None]
  - TACHYPHRENIA [None]
  - CONFUSIONAL STATE [None]
  - INCORRECT DRUG ADMINISTRATION DURATION [None]
  - DEHYDRATION [None]
